FAERS Safety Report 6871552-7 (Version None)
Quarter: 2010Q3

REPORT INFORMATION
  Report Type: 
  Country: None (occurrence: None)
  Receive Date: 20100723
  Receipt Date: 20100712
  Transmission Date: 20110219
  Serious: Yes (Hospitalization)
  Sender: FDA-Public Use
  Company Number: PHHY2010PL45957

PATIENT
  Sex: Male
  Weight: 94 kg

DRUGS (2)
  1. ZOLEDRONATE T29581++BM [Suspect]
     Dosage: 4 MG
     Dates: start: 20100524, end: 20100524
  2. DURAGESIC-100 [Concomitant]
     Indication: PAIN
     Dosage: 25 IG/HOUR
     Dates: start: 20090101

REACTIONS (2)
  - HAEMORRHAGE [None]
  - NORMOCHROMIC NORMOCYTIC ANAEMIA [None]
